FAERS Safety Report 7338338-0 (Version None)
Quarter: 2011Q1

REPORT INFORMATION
  Report Type: 
  Country: None (occurrence: None)
  Receive Date: 20110308
  Receipt Date: 20110302
  Transmission Date: 20110831
  Serious: Yes (Hospitalization)
  Sender: FDA-Public Use
  Company Number: FR-GILEAD-E2B_00001099

PATIENT
  Sex: Female

DRUGS (15)
  1. ATARAX [Concomitant]
     Dosage: 25MG PER DAY
     Route: 048
  2. FUROSEMIDE [Concomitant]
     Dosage: 120MG PER DAY
     Route: 048
  3. ACETAMINOPHEN [Concomitant]
     Route: 048
  4. AMBRISENTAN [Suspect]
     Indication: PULMONARY ARTERIAL HYPERTENSION
     Dosage: 5MG PER DAY
     Route: 048
     Dates: start: 20101201
  5. FLOLAN [Suspect]
     Indication: PULMONARY ARTERIAL HYPERTENSION
     Route: 042
     Dates: start: 20101001
  6. FLOLAN [Suspect]
     Dates: start: 20110101
  7. HUMIRA [Suspect]
     Indication: JUVENILE ARTHRITIS
     Dosage: 40MG EVERY TWO WEEKS
     Route: 058
     Dates: start: 20090101, end: 20110101
  8. HEMIGOXINE [Concomitant]
     Dosage: 1TAB PER DAY
     Route: 048
  9. ALUMINUM HYDROXIDE AND MAGNESIUM TRISILICATE [Concomitant]
     Dosage: 1SAC THREE TIMES PER DAY
     Route: 048
  10. BETNEVAL [Concomitant]
     Route: 061
  11. INSPRA [Concomitant]
     Dosage: 25MG PER DAY
     Route: 048
  12. EUPANTOL [Concomitant]
     Dosage: 20MG PER DAY
     Route: 048
  13. HUMIRA [Suspect]
     Dates: start: 20110201
  14. PREVISCAN [Concomitant]
     Indication: PULMONARY ARTERIAL HYPERTENSION
     Dosage: 5MG PER DAY
     Route: 048
     Dates: start: 20070301
  15. SITAXSENTAN [Concomitant]
     Indication: PULMONARY ARTERIAL HYPERTENSION
     Route: 048
     Dates: end: 20101201

REACTIONS (7)
  - DYSPNOEA [None]
  - OEDEMA PERIPHERAL [None]
  - THROMBOCYTOPENIA [None]
  - DECREASED APPETITE [None]
  - WEIGHT INCREASED [None]
  - NAUSEA [None]
  - VOMITING [None]
